FAERS Safety Report 25713998 (Version 4)
Quarter: 2025Q4

REPORT INFORMATION
  Report Type: Report from Study
  Country: US (occurrence: None)
  Receive Date: 20250822
  Receipt Date: 20251027
  Transmission Date: 20260117
  Serious: Yes (Other)
  Sender: UCB
  Company Number: US-UCBSA-2025050620

PATIENT
  Age: 39 Year
  Weight: 66 kg

DRUGS (3)
  1. FENFLURAMINE HYDROCHLORIDE [Suspect]
     Active Substance: FENFLURAMINE HYDROCHLORIDE
     Indication: Lennox-Gastaut syndrome
     Dosage: 4.5 MILLILITER, 2X/DAY (BID)
  2. FENFLURAMINE HYDROCHLORIDE [Suspect]
     Active Substance: FENFLURAMINE HYDROCHLORIDE
     Dosage: 2.2 MILLIGRAM/KILOGRAM PER DAY
  3. FENFLURAMINE HYDROCHLORIDE [Suspect]
     Active Substance: FENFLURAMINE HYDROCHLORIDE
     Dosage: 4.5 MILLILITER, 2X/DAY (BID)

REACTIONS (3)
  - Seizure [Unknown]
  - Tricuspid valve incompetence [Not Recovered/Not Resolved]
  - Behaviour disorder [Not Recovered/Not Resolved]
